FAERS Safety Report 6640804-8 (Version None)
Quarter: 2010Q1

REPORT INFORMATION
  Report Type: 
  Country: None (occurrence: None)
  Receive Date: 20100318
  Receipt Date: 20100311
  Transmission Date: 20100710
  Serious: Yes (Death)
  Sender: FDA-Public Use
  Company Number: IT-ELI_LILLY_AND_COMPANY-IT201003003043

PATIENT
  Age: 56 Year
  Sex: Male

DRUGS (7)
  1. BYETTA [Suspect]
     Dosage: 10 UG, 2/D
     Dates: start: 20091101
  2. GLYBURIDE AND METFORMIN HCL [Concomitant]
     Indication: DIABETES MELLITUS
  3. ACARBOSE [Concomitant]
     Indication: DIABETES MELLITUS
  4. BETA BLOCKING AGENTS [Concomitant]
  5. DIURETICS [Concomitant]
  6. SARTAN [Concomitant]
     Indication: HYPERTENSION
  7. ASPIRIN [Concomitant]
     Dosage: 100 MG, UNKNOWN

REACTIONS (1)
  - DEATH [None]
